FAERS Safety Report 8427943-6 (Version None)
Quarter: 2012Q2

REPORT INFORMATION
  Report Type: 
  Country: None (occurrence: None)
  Receive Date: 20120611
  Receipt Date: 20120528
  Transmission Date: 20120825
  Serious: Yes (Hospitalization, Other)
  Sender: FDA-Public Use
  Company Number: US-MYLANLABS-2009AC000289

PATIENT
  Age: 65 Year
  Sex: Male
  Weight: 98.88 kg

DRUGS (54)
  1. CRESTOR [Concomitant]
  2. PRILOSEC [Concomitant]
  3. FOLIC ACID [Concomitant]
  4. TRAZODONE HCL [Concomitant]
  5. ATACAND [Concomitant]
  6. CRESTOR [Concomitant]
  7. HEPARIN [Concomitant]
  8. KEFLEX [Concomitant]
  9. OTICIN HC [Concomitant]
  10. ASPIRIN [Concomitant]
  11. METFORMIN HCL [Concomitant]
  12. ZOCOR [Concomitant]
  13. HYTRIN [Concomitant]
  14. AZITHROMYCIN [Concomitant]
  15. PREDNISONE TAB [Concomitant]
  16. CHLORTHALIDONE [Concomitant]
  17. GUAIFENEX /00048001/ [Concomitant]
  18. LOVASTATIN [Concomitant]
  19. VICODIN [Concomitant]
  20. DIGOXIN [Suspect]
     Indication: PRODUCT USED FOR UNKNOWN INDICATION
     Route: 048
     Dates: start: 19980205, end: 20081101
  21. SPIRIVA [Concomitant]
  22. DARVOCET-N 50 [Concomitant]
  23. TISSUE PLASMINOGEN ACTIVATOR, RECOMBINATIVE [Concomitant]
  24. MIRAPEX [Concomitant]
  25. GLUCOPHAGE [Concomitant]
  26. WARFARIN [Concomitant]
  27. CORDARONE [Concomitant]
  28. VIAGRA [Concomitant]
  29. ZITHROMAX [Concomitant]
  30. LASIX [Concomitant]
  31. FLUOXETINE [Concomitant]
  32. PLAVIX [Concomitant]
  33. COUMADIN [Concomitant]
  34. PROZAC [Concomitant]
  35. MONOPRIL [Concomitant]
  36. FOLTX [Concomitant]
  37. ZETIA [Concomitant]
  38. NITROSTAT [Concomitant]
  39. CORTISPORIN /00271401/ [Concomitant]
  40. LIPITOR [Concomitant]
  41. LOPRESSOR [Concomitant]
  42. PEPCID [Concomitant]
  43. VYTORIN [Concomitant]
  44. METFORMIN HCL [Concomitant]
  45. TOPROL-XL [Concomitant]
  46. DIFLUCAN [Concomitant]
  47. FORADIL [Concomitant]
  48. PROCAINAMIDE [Concomitant]
  49. LISINOPRIL [Concomitant]
  50. CLINORIL [Concomitant]
  51. MIRAPEX [Concomitant]
  52. METOPROLOL TARTRATE [Concomitant]
  53. PREVACID [Concomitant]
  54. VASOTEC [Concomitant]

REACTIONS (162)
  - ANGINA PECTORIS [None]
  - TOXICITY TO VARIOUS AGENTS [None]
  - ASTHMA [None]
  - CARDIAC FLUTTER [None]
  - CARDIAC VALVE DISEASE [None]
  - DEMENTIA [None]
  - SOMNOLENCE [None]
  - NECK PAIN [None]
  - DYSPHAGIA [None]
  - PRESYNCOPE [None]
  - LIMB INJURY [None]
  - RHINITIS ALLERGIC [None]
  - PRURITUS [None]
  - PRODUCTIVE COUGH [None]
  - UPPER RESPIRATORY TRACT INFECTION [None]
  - HYPERSOMNIA [None]
  - OTITIS EXTERNA [None]
  - EMOTIONAL DISTRESS [None]
  - QUALITY OF LIFE DECREASED [None]
  - SNORING [None]
  - INJURY [None]
  - ANGINA UNSTABLE [None]
  - ATRIAL FIBRILLATION [None]
  - MALAISE [None]
  - CHEST PAIN [None]
  - HYPERHIDROSIS [None]
  - BASAL CELL CARCINOMA [None]
  - SUPRAVENTRICULAR TACHYCARDIA [None]
  - PANCREATITIS [None]
  - PULMONARY FIBROSIS [None]
  - URINARY RETENTION [None]
  - BENIGN PROSTATIC HYPERPLASIA [None]
  - CHRONIC OBSTRUCTIVE PULMONARY DISEASE [None]
  - MUSCULOSKELETAL PAIN [None]
  - PERIODONTAL DISEASE [None]
  - DEPRESSION [None]
  - WOUND [None]
  - PNEUMONIA [None]
  - MOOD SWINGS [None]
  - EXERCISE TOLERANCE DECREASED [None]
  - OEDEMA [None]
  - EAR DISORDER [None]
  - WALKING AID USER [None]
  - BREATH SOUNDS ABNORMAL [None]
  - SKIN EXFOLIATION [None]
  - ABDOMINAL TENDERNESS [None]
  - PULMONARY FUNCTION TEST ABNORMAL [None]
  - RHINORRHOEA [None]
  - BREAST PAIN [None]
  - RENAL FAILURE [None]
  - DIZZINESS [None]
  - DYSPNOEA PAROXYSMAL NOCTURNAL [None]
  - DYSKINESIA [None]
  - OBESITY [None]
  - HYPERLIPIDAEMIA [None]
  - CHOLELITHIASIS [None]
  - VOMITING [None]
  - LOCALISED INFECTION [None]
  - PERTUSSIS [None]
  - PROSTATIC DISORDER [None]
  - EAR PAIN [None]
  - BLOOD CREATININE INCREASED [None]
  - HYPERTENSIVE NEPHROPATHY [None]
  - OXYGEN SATURATION DECREASED [None]
  - ABDOMINAL RIGIDITY [None]
  - SKIN WARM [None]
  - CARDIAC MURMUR [None]
  - NUCLEAR MAGNETIC RESONANCE IMAGING [None]
  - SPINAL COMPRESSION FRACTURE [None]
  - DEVICE MALFUNCTION [None]
  - ARTERIOSCLEROSIS CORONARY ARTERY [None]
  - HAEMOPTYSIS [None]
  - COUGH [None]
  - WHEEZING [None]
  - CATHETERISATION CARDIAC [None]
  - MYOCARDIAL INFARCTION [None]
  - ATRIAL FLUTTER [None]
  - VENTRICULAR HYPOKINESIA [None]
  - ATELECTASIS [None]
  - HYPOPNOEA [None]
  - DIAPHRAGMATIC PARALYSIS [None]
  - SKIN LESION [None]
  - RESPIRATORY TRACT CONGESTION [None]
  - HAEMATURIA [None]
  - ARTHRALGIA [None]
  - VISUAL IMPAIRMENT [None]
  - MENTAL DISORDER [None]
  - SINUS DISORDER [None]
  - SKIN CHAPPED [None]
  - ECONOMIC PROBLEM [None]
  - CARDIAC ABLATION [None]
  - FATIGUE [None]
  - SPLENECTOMY [None]
  - SYNCOPE [None]
  - TOBACCO ABUSE [None]
  - SLEEP APNOEA SYNDROME [None]
  - DYSPEPSIA [None]
  - HYPERTENSION [None]
  - ABDOMINAL PAIN [None]
  - STRESS [None]
  - ASTHENIA [None]
  - NAUSEA [None]
  - IMPAIRED FASTING GLUCOSE [None]
  - TINEA PEDIS [None]
  - POOR QUALITY SLEEP [None]
  - RESTLESS LEGS SYNDROME [None]
  - AMNESIA [None]
  - VERTIGO [None]
  - LIP PAIN [None]
  - RALES [None]
  - DILATATION VENTRICULAR [None]
  - VENTRICULAR DYSFUNCTION [None]
  - BRONCHITIS [None]
  - ISCHAEMIA [None]
  - CARDIAC PACEMAKER INSERTION [None]
  - CHEST DISCOMFORT [None]
  - BLOOD PRESSURE FLUCTUATION [None]
  - GALLBLADDER DISORDER [None]
  - TOOTH EXTRACTION [None]
  - BACK PAIN [None]
  - PEPTIC ULCER [None]
  - RESTRICTIVE PULMONARY DISEASE [None]
  - PARAESTHESIA [None]
  - CONTUSION [None]
  - VENTRICULAR EXTRASYSTOLES [None]
  - ELECTROCARDIOGRAM ABNORMAL [None]
  - ERYTHEMA [None]
  - EJECTION FRACTION DECREASED [None]
  - CONFUSIONAL STATE [None]
  - ILL-DEFINED DISORDER [None]
  - DIABETES MELLITUS [None]
  - DYSPNOEA [None]
  - CONTINUOUS POSITIVE AIRWAY PRESSURE [None]
  - CORONARY ARTERIAL STENT INSERTION [None]
  - HEPATITIS [None]
  - ISCHAEMIC CARDIOMYOPATHY [None]
  - MICTURITION URGENCY [None]
  - HYPERCHOLESTEROLAEMIA [None]
  - INTENTION TREMOR [None]
  - ERECTILE DYSFUNCTION [None]
  - LIPID METABOLISM DISORDER [None]
  - CHOLECYSTECTOMY [None]
  - PALLOR [None]
  - FALL [None]
  - WEIGHT INCREASED [None]
  - LETHARGY [None]
  - LABORATORY TEST ABNORMAL [None]
  - DILATATION ATRIAL [None]
  - X-RAY ABNORMAL [None]
  - KYPHOSIS [None]
  - CARDIAC FAILURE CONGESTIVE [None]
  - HEPATOTOXICITY [None]
  - APNOEA [None]
  - MIDDLE INSOMNIA [None]
  - PERIODIC LIMB MOVEMENT DISORDER [None]
  - HEPATIC STEATOSIS [None]
  - INCREASED UPPER AIRWAY SECRETION [None]
  - PERIODONTITIS [None]
  - INFLUENZA LIKE ILLNESS [None]
  - PALPITATIONS [None]
  - HEADACHE [None]
  - EMPHYSEMA [None]
